FAERS Safety Report 9474092 (Version 1)
Quarter: 2013Q3

REPORT INFORMATION
  Report Type: Spontaneous
  Country: US (occurrence: US)
  Receive Date: 20130823
  Receipt Date: 20130823
  Transmission Date: 20140515
  Serious: No
  Sender: FDA-Public Use
  Company Number: US-009507513-1308USA007040

PATIENT
  Sex: Male

DRUGS (1)
  1. PRINIVIL [Suspect]
     Dosage: UNK
     Route: 048
     Dates: end: 20130522

REACTIONS (4)
  - Coordination abnormal [Unknown]
  - Blood pressure decreased [Unknown]
  - Weight decreased [Unknown]
  - Drug ineffective [Unknown]
